FAERS Safety Report 13637971 (Version 2)
Quarter: 2017Q2

REPORT INFORMATION
  Report Type: Spontaneous
  Country: DE (occurrence: DE)
  Receive Date: 20170609
  Receipt Date: 20170630
  Transmission Date: 20170830
  Serious: Yes (Other)
  Sender: FDA-Public Use
  Company Number: DE-JNJFOC-20170603192

PATIENT

DRUGS (1)
  1. REMICADE [Suspect]
     Active Substance: INFLIXIMAB
     Indication: CROHN^S DISEASE
     Dosage: SINCE 1/2 TO 1 YEAR.
     Route: 042

REACTIONS (3)
  - General physical health deterioration [Unknown]
  - Crohn^s disease [Unknown]
  - Drug level decreased [Unknown]
